FAERS Safety Report 8549381-8 (Version None)
Quarter: 2012Q3

REPORT INFORMATION
  Report Type: 
  Country: None (occurrence: None)
  Receive Date: 20120730
  Receipt Date: 20120719
  Transmission Date: 20120928
  Serious: Yes (Death, Life-Threatening, Hospitalization)
  Sender: FDA-Public Use
  Company Number: BG-CELGENEUS-022-21880-12070804

PATIENT
  Sex: Female
  Weight: 70 kg

DRUGS (12)
  1. ACETYSAL [Concomitant]
     Indication: ANTICOAGULANT THERAPY
     Dosage: 100 MILLIGRAM
     Route: 048
     Dates: start: 20110828
  2. REVLIMID [Suspect]
     Indication: MULTIPLE MYELOMA
     Dosage: 25 MILLIGRAM
     Route: 048
     Dates: start: 20110829, end: 20110918
  3. REVLIMID [Suspect]
     Dosage: 15 MILLIGRAM
     Route: 048
     Dates: start: 20111024, end: 20111114
  4. REVLIMID [Suspect]
     Dosage: 10 MILLIGRAM
     Route: 048
     Dates: start: 20120221, end: 20120312
  5. DEXAMETHASONE [Suspect]
     Indication: MULTIPLE MYELOMA
     Dosage: 40 MILLIGRAM
     Route: 065
     Dates: start: 20110829, end: 20110919
  6. DEXAMETHASONE [Suspect]
     Dosage: 40 MILLIGRAM
     Route: 065
     Dates: start: 20120221, end: 20120313
  7. ACETYSAL [Concomitant]
     Indication: ANTIPLATELET THERAPY
     Route: 065
  8. REVLIMID [Suspect]
     Dosage: 15 MILLIGRAM
     Route: 048
     Dates: start: 20111128, end: 20111218
  9. REVLIMID [Suspect]
     Dosage: 25 MILLIGRAM
     Route: 048
     Dates: start: 20110926, end: 20111007
  10. EPREX [Concomitant]
     Indication: ANAEMIA
     Dosage: 1428.5714 IU (INTERNATIONAL UNIT)
     Route: 058
     Dates: start: 20120221
  11. LANSOPROL [Concomitant]
     Indication: GASTRITIS PROPHYLAXIS
     Dosage: 15 MILLIGRAM
     Route: 048
     Dates: start: 20110828
  12. SORBIFER DURULESFEROUS SULFATE [Concomitant]
     Indication: ANAEMIA
     Dosage: 100 MILLIGRAM
     Route: 048
     Dates: start: 20120221

REACTIONS (1)
  - RENAL FAILURE ACUTE [None]
